FAERS Safety Report 6083558-9 (Version None)
Quarter: 2009Q1

REPORT INFORMATION
  Report Type: 
  Country: None (occurrence: None)
  Receive Date: 20090217
  Receipt Date: 20090204
  Transmission Date: 20090719
  Serious: No
  Sender: FDA-Public Use
  Company Number: US024182

PATIENT
  Age: 64 Year
  Sex: Male
  Weight: 76.2043 kg

DRUGS (12)
  1. FENTORA [Suspect]
     Indication: BONE PAIN
     Dosage: 600 UG BUCCAL
     Route: 002
     Dates: start: 20060101
  2. FENTORA [Suspect]
     Indication: BONE PAIN
     Dosage: 800 UG BUCCAL
     Route: 002
  3. OPANA [Concomitant]
  4. VALIUM [Concomitant]
  5. SYNTHROID [Concomitant]
  6. CYMBALTA [Concomitant]
  7. FLEXERIL [Concomitant]
  8. DHEA SR [Concomitant]
  9. AMBIEN [Concomitant]
  10. DEXEDRINE [Concomitant]
  11. DILAUDID [Concomitant]
  12. LIMBEREL [Concomitant]

REACTIONS (2)
  - DRUG PRESCRIBING ERROR [None]
  - THERAPEUTIC RESPONSE DECREASED [None]
